FAERS Safety Report 20194088 (Version 2)
Quarter: 2022Q1

REPORT INFORMATION
  Report Type: Spontaneous
  Country: JP (occurrence: None)
  Receive Date: 20211216
  Receipt Date: 20220217
  Transmission Date: 20220423
  Serious: Yes (Hospitalization, Disabling)
  Sender: FDA-Public Use
  Company Number: 2021A088072

PATIENT
  Age: 71 Year
  Sex: Male
  Weight: 44 kg

DRUGS (2)
  1. IMFINZI [Suspect]
     Active Substance: DURVALUMAB
     Indication: Non-small cell lung cancer
     Route: 041
     Dates: start: 20210127, end: 20210224
  2. IMFINZI [Suspect]
     Active Substance: DURVALUMAB
     Indication: Non-small cell lung cancer
     Route: 041
     Dates: start: 20210310, end: 20210310

REACTIONS (4)
  - Pulmonary toxicity [Recovering/Resolving]
  - Autonomic neuropathy [Recovering/Resolving]
  - Disseminated varicella zoster virus infection [Recovered/Resolved]
  - Lung squamous cell carcinoma recurrent [Unknown]

NARRATIVE: CASE EVENT DATE: 20210101
